FAERS Safety Report 7806313-5 (Version None)
Quarter: 2011Q4

REPORT INFORMATION
  Report Type: 
  Country: None (occurrence: None)
  Receive Date: 20111011
  Receipt Date: 20110725
  Transmission Date: 20120403
  Serious: No
  Sender: FDA-Public Use
  Company Number: US-GLAXOSMITHKLINE-A0938196A

PATIENT
  Age: 3 Year
  Sex: Female

DRUGS (2)
  1. VERDESO [Suspect]
     Route: 061
  2. NO CONCURRENT MEDICATION [Concomitant]

REACTIONS (2)
  - OVERDOSE [None]
  - ACCIDENTAL EXPOSURE [None]
